FAERS Safety Report 9147060 (Version 3)
Quarter: 2013Q2

REPORT INFORMATION
  Report Type: Spontaneous
  Country: US (occurrence: US)
  Receive Date: 20130307
  Receipt Date: 20130606
  Transmission Date: 20140414
  Serious: No
  Sender: FDA-Public Use
  Company Number: US-009507513-1303USA002758

PATIENT
  Age: 25 Year
  Sex: Female

DRUGS (4)
  1. NEXPLANON [Suspect]
     Indication: CONTRACEPTION
     Dosage: UNK
     Route: 059
     Dates: start: 20130301, end: 20130304
  2. CELEXA [Concomitant]
  3. METHADONE HYDROCHLORIDE [Concomitant]
  4. MACROBID (CLARITHROMYCIN) [Concomitant]

REACTIONS (4)
  - Implant site erythema [Recovering/Resolving]
  - Implant site irritation [Unknown]
  - Device expulsion [Recovered/Resolved]
  - Device dislocation [Recovered/Resolved]
